FAERS Safety Report 9241601 (Version 1)
Quarter: 2013Q2

REPORT INFORMATION
  Report Type: Spontaneous
  Country: US (occurrence: US)
  Receive Date: 20130419
  Receipt Date: 20130419
  Transmission Date: 20140414
  Serious: No
  Sender: FDA-Public Use
  Company Number: US-SANOFI-AVENTIS-2013SA019993

PATIENT
  Sex: Female
  Weight: 181.43 kg

DRUGS (2)
  1. LOVENOX [Suspect]
     Indication: ANTICOAGULANT THERAPY
     Dates: start: 20130219
  2. WARFARIN [Concomitant]

REACTIONS (4)
  - Injection site scar [Not Recovered/Not Resolved]
  - Pruritus [Not Recovered/Not Resolved]
  - Pain [Not Recovered/Not Resolved]
  - Erythema [Not Recovered/Not Resolved]
